FAERS Safety Report 5758974-2 (Version None)
Quarter: 2008Q2

REPORT INFORMATION
  Report Type: 
  Country: None (occurrence: None)
  Receive Date: 20080602
  Receipt Date: 20080516
  Transmission Date: 20081010
  Serious: Yes (Hospitalization)
  Sender: FDA-Public Use
  Company Number: 2008-177553-NL

PATIENT
  Age: 34 Year
  Sex: Male

DRUGS (10)
  1. MIRTAZAPINE [Suspect]
     Indication: DEPRESSION
     Dosage: 37.1 MG; ORAL
     Route: 048
     Dates: start: 20080116, end: 20080205
  2. LORAZEPAM [Concomitant]
  3. ZOLPIDEM [Concomitant]
  4. VENLAFAXINE HYDROCHLORIDE [Concomitant]
  5. IMIPRAMINE [Concomitant]
  6. OMEPRAZOLE [Concomitant]
  7. ROPINIROLE HCL [Concomitant]
  8. ASPIRIN [Concomitant]
  9. ACETAMINOPHEN [Concomitant]
  10. IBUROFEN [Concomitant]

REACTIONS (1)
  - HEPATITIS ACUTE [None]
